FAERS Safety Report 9401985 (Version 1)
Quarter: 2013Q3

REPORT INFORMATION
  Report Type: Spontaneous
  Country: US (occurrence: US)
  Receive Date: 20130716
  Receipt Date: 20130716
  Transmission Date: 20140515
  Serious: No
  Sender: FDA-Public Use
  Company Number: US-PFIZER INC-2013206520

PATIENT
  Age: 75 Year
  Sex: Male
  Weight: 70.3 kg

DRUGS (2)
  1. GABAPENTIN [Suspect]
     Indication: NEUROPATHY PERIPHERAL
     Dosage: 1500MG IN A DAY BY TAKING 2 CAPSULES OF 300MG IN NIGHT AND 3 CAPSULES OF 300MG IN MORNING
     Route: 048
     Dates: end: 201307
  2. METFORMIN ER [Concomitant]
     Indication: INSULIN RESISTANCE
     Dosage: 500 MG, 2X/DAY

REACTIONS (3)
  - Off label use [Unknown]
  - Dizziness [Unknown]
  - Drug ineffective for unapproved indication [Unknown]
